FAERS Safety Report 8987122 (Version 2)
Quarter: 2013Q1

REPORT INFORMATION
  Report Type: Spontaneous
  Country: US (occurrence: US)
  Receive Date: 20121227
  Receipt Date: 20130227
  Transmission Date: 20140127
  Serious: Yes (Hospitalization, Other)
  Sender: FDA-Public Use
  Company Number: US-AMGEN-USASP2012082516

PATIENT
  Age: 68 Year
  Sex: Female
  Weight: 104.76 kg

DRUGS (15)
  1. ENBREL [Suspect]
     Indication: RHEUMATOID ARTHRITIS
     Dosage: 50 MG, QWK
     Route: 058
     Dates: start: 20071012, end: 201212
  2. ZETIA [Concomitant]
     Dosage: 10 MG, QD
  3. LISINOPRIL [Concomitant]
     Dosage: 5 MG, QD
  4. LISINOPRIL [Concomitant]
     Dosage: 10 MG, QD
  5. LEVOXYL [Concomitant]
     Dosage: 88 MUG, QD
  6. LEVOXYL [Concomitant]
     Dosage: 0.075 MG, ONXE DAILY
  7. RECLAST [Concomitant]
     Dosage: 5MG/100ML, ONCE A YEAR
  8. ACETAMINOPHEN [Concomitant]
     Dosage: 650 MG, ER EVERY 8 HOURS AS NEEDED
  9. CALCIUM D                          /00944201/ [Concomitant]
     Dosage: CALCIUM 600+ 13 600 MG- 200 UNITS, BID
  10. PRILOSEC                           /00661201/ [Concomitant]
     Dosage: 20 MG, QD, DELAYED RELEASE CAPSULE
  11. METHOTREXATE [Concomitant]
     Dosage: 2.5 MG, 4 TABS ONCE A WEEK
  12. VICODIN [Concomitant]
     Dosage: 500 MG-5 MG TABLET EVERY 12 HOURS PRN
  13. FOLIC ACID [Concomitant]
     Dosage: 1 MG, QD
  14. MEDROL                             /00049601/ [Concomitant]
     Dosage: DOSEPAK AS DIRECTED
  15. ALBUTEROL                          /00139501/ [Concomitant]
     Dosage: INHALER AS DIRECTED TID

REACTIONS (2)
  - Fall [Recovering/Resolving]
  - Humerus fracture [Recovering/Resolving]
